FAERS Safety Report 24103700 (Version 1)
Quarter: 2024Q3

REPORT INFORMATION
  Report Type: Report from Study
  Country: PK (occurrence: PK)
  Receive Date: 20240717
  Receipt Date: 20240717
  Transmission Date: 20241016
  Serious: Yes (Death)
  Sender: ROCHE
  Company Number: PK-ROCHE-10000022988

PATIENT
  Age: 60 Year
  Sex: Female

DRUGS (1)
  1. RITUXIMAB [Suspect]
     Active Substance: RITUXIMAB
     Indication: Diffuse large B-cell lymphoma
     Dosage: SOLUTION FORM, TOTAL NUMBER OF CYCLES ADMINISTERED = 02
     Route: 042
     Dates: start: 20240508, end: 20240603

REACTIONS (1)
  - Cardio-respiratory arrest [Fatal]

NARRATIVE: CASE EVENT DATE: 20240703
